FAERS Safety Report 4458235-8 (Version None)
Quarter: 2004Q3

REPORT INFORMATION
  Report Type: 
  Country: None (occurrence: None)
  Receive Date: 20040922
  Receipt Date: 20040902
  Transmission Date: 20050211
  Serious: Yes (Other)
  Sender: FDA-Public Use
  Company Number: JP_040904422

PATIENT
  Age: 3 Week
  Sex: Male
  Weight: 2 kg

DRUGS (3)
  1. VANCOMYCIN [Suspect]
     Indication: SEPSIS
     Dosage: 150 MG/KG
     Dates: start: 20040829, end: 20040829
  2. CARBENIN [Concomitant]
  3. FLUCONAZOLE [Concomitant]

REACTIONS (1)
  - WHITE BLOOD CELL COUNT INCREASED [None]
